FAERS Safety Report 18250041 (Version 1)
Quarter: 2020Q3

REPORT INFORMATION
  Report Type: Spontaneous
  Country: IN (occurrence: IN)
  Receive Date: 20200910
  Receipt Date: 20200910
  Transmission Date: 20201103
  Serious: Yes (Death, Life-Threatening, Hospitalization)
  Sender: FDA-Public Use
  Company Number: IN-NOVITIUMPHARMA-2020INNVP00048

PATIENT
  Age: 26 Year
  Sex: Male

DRUGS (1)
  1. ACYCLOVIR. [Suspect]
     Active Substance: ACYCLOVIR
     Indication: ORAL HERPES

REACTIONS (15)
  - Stevens-Johnson syndrome [Fatal]
  - Pyrexia [Fatal]
  - Conjunctivitis [Fatal]
  - Rash [Fatal]
  - Acute kidney injury [Fatal]
  - Coma scale [Fatal]
  - Purpura [Fatal]
  - Eye pain [Fatal]
  - Skin lesion [Fatal]
  - Mouth haemorrhage [Fatal]
  - Malaise [Fatal]
  - Lip haemorrhage [Fatal]
  - Acute respiratory distress syndrome [Fatal]
  - Odynophagia [Fatal]
  - Nikolsky^s sign [Fatal]
